FAERS Safety Report 9197214 (Version 3)
Quarter: 2013Q2

REPORT INFORMATION
  Report Type: Report from Study
  Country: CA (occurrence: CA)
  Receive Date: 20130328
  Receipt Date: 20130506
  Transmission Date: 20140414
  Serious: Yes (Life-Threatening)
  Sender: FDA-Public Use
  Company Number: CA-ROCHE-1207626

PATIENT
  Age: 42 Year
  Sex: Female
  Weight: 52.6 kg

DRUGS (16)
  1. AVASTIN [Suspect]
     Indication: COLON CANCER
     Route: 042
     Dates: start: 201212
  2. AVASTIN [Suspect]
     Route: 065
  3. OXALIPLATIN [Suspect]
     Indication: COLON CANCER
     Route: 042
     Dates: start: 201209, end: 2013
  4. OXALIPLATIN [Suspect]
     Route: 065
     Dates: start: 2013
  5. FOLINIC ACID [Suspect]
     Indication: COLON CANCER
     Route: 042
     Dates: start: 201209, end: 2013
  6. FOLINIC ACID [Suspect]
     Route: 065
     Dates: start: 2013
  7. FLUOROURACIL [Suspect]
     Indication: COLON CANCER
     Route: 042
     Dates: start: 201209, end: 2013
  8. FLUOROURACIL [Suspect]
     Route: 065
     Dates: start: 2013
  9. FENTANYL [Concomitant]
  10. MORPHINE [Concomitant]
  11. ZOFRAN [Concomitant]
  12. MAXERAN [Concomitant]
  13. BENADRYL [Concomitant]
  14. ZANTAC [Concomitant]
  15. IRINOTECAN [Concomitant]
  16. DEXAMETHASONE [Concomitant]

REACTIONS (3)
  - Pulmonary embolism [Unknown]
  - Nausea [Unknown]
  - Fatigue [Unknown]
